FAERS Safety Report 8307602-0 (Version None)
Quarter: 2012Q2

REPORT INFORMATION
  Report Type: 
  Country: None (occurrence: None)
  Receive Date: 20120424
  Receipt Date: 20120416
  Transmission Date: 20120825
  Serious: Yes (Hospitalization, Other)
  Sender: FDA-Public Use
  Company Number: US-PFIZER INC-2012046669

PATIENT
  Sex: Female
  Weight: 68.027 kg

DRUGS (5)
  1. LYRICA [Suspect]
     Dosage: 225 MG, 2X/DAY
     Route: 048
     Dates: end: 20120201
  2. FLAXSEED OIL [Concomitant]
     Dosage: UNK
  3. NEURONTIN [Suspect]
     Indication: TRIGEMINAL NEURALGIA
     Dosage: UNK
     Route: 048
     Dates: start: 20080101
  4. LYRICA [Suspect]
     Indication: TRIGEMINAL NEURALGIA
     Dosage: 150 MG, 2X/DAY
     Route: 048
     Dates: start: 20100101
  5. LYRICA [Suspect]
     Dosage: 75 MG, UNK

REACTIONS (7)
  - PAIN [None]
  - DRUG INEFFECTIVE [None]
  - WEIGHT DECREASED [None]
  - TRIGEMINAL NEURALGIA [None]
  - FEELING ABNORMAL [None]
  - MASTICATION DISORDER [None]
  - LACRIMATION INCREASED [None]
